FAERS Safety Report 5995918-2 (Version None)
Quarter: 2008Q4

REPORT INFORMATION
  Report Type: 
  Country: None (occurrence: None)
  Receive Date: 20081212
  Receipt Date: 20081006
  Transmission Date: 20090506
  Serious: No
  Sender: FDA-Public Use
  Company Number: US-ABBOTT-08P-163-0479948-00

PATIENT
  Sex: Female
  Weight: 77.18 kg

DRUGS (7)
  1. HUMIRA [Suspect]
     Indication: PSORIATIC ARTHROPATHY
     Route: 058
     Dates: start: 20080904
  2. LEVOTHYROXINE SODIUM [Concomitant]
     Indication: HYPOTHYROIDISM
  3. MONTELUKAST SODIUM [Concomitant]
     Indication: HYPERSENSITIVITY
  4. ALBUTEROL SULFATE [Concomitant]
     Indication: HYPERSENSITIVITY
     Route: 055
  5. RISEDRONATE SODIUM [Concomitant]
     Indication: OSTEOPOROSIS
  6. CALCIUM-SANDOZ [Concomitant]
     Indication: OSTEOPOROSIS
  7. VIGRAN [Concomitant]
     Indication: DRUG USE FOR UNKNOWN INDICATION

REACTIONS (2)
  - INJECTION SITE HAEMATOMA [None]
  - INJECTION SITE PAIN [None]
